FAERS Safety Report 4861231-X (Version None)
Quarter: 2005Q4

REPORT INFORMATION
  Report Type: 
  Country: None (occurrence: None)
  Receive Date: 20051220
  Receipt Date: 20051128
  Transmission Date: 20060501
  Serious: Yes (Hospitalization)
  Sender: FDA-Public Use
  Company Number: DE-BRISTOL-MYERS SQUIBB COMPANY-13195946

PATIENT
  Age: 62 Year
  Sex: Female
  Weight: 73 kg

DRUGS (8)
  1. TAXOL [Suspect]
     Indication: BREAST CANCER
     Route: 042
     Dates: start: 20051116, end: 20051116
  2. CYCLOPHOSPHAMIDE [Suspect]
     Indication: BREAST CANCER
     Route: 042
     Dates: start: 20050831, end: 20050831
  3. EPIRUBICIN [Suspect]
     Indication: BREAST CANCER
     Route: 042
     Dates: start: 20050831, end: 20050831
  4. DEXAMETHASONE [Concomitant]
     Route: 042
     Dates: start: 20051108, end: 20051108
  5. TAVEGIL [Concomitant]
     Route: 042
     Dates: start: 20051108, end: 20051108
  6. SOSTRIL [Concomitant]
     Route: 042
     Dates: start: 20051108, end: 20051108
  7. ZOFRAN [Concomitant]
     Route: 042
     Dates: start: 20051108, end: 20051108
  8. DARBEPOETIN ALFA [Concomitant]
     Dates: start: 20051108

REACTIONS (2)
  - BORRELIA INFECTION [None]
  - ERYSIPELAS [None]
